FAERS Safety Report 23950880 (Version 3)
Quarter: 2024Q3

REPORT INFORMATION
  Report Type: Spontaneous
  Country: US (occurrence: US)
  Receive Date: 20240607
  Receipt Date: 20240911
  Transmission Date: 20241016
  Serious: Yes (Other)
  Sender: NOVO NORDISK
  Company Number: US-NOVOPROD-1231358

PATIENT
  Age: 33 Year
  Sex: Female

DRUGS (1)
  1. SAXENDA [Suspect]
     Active Substance: LIRAGLUTIDE
     Indication: Weight control
     Dosage: 0.6 MG
     Route: 058
     Dates: start: 20240522, end: 20240530

REACTIONS (9)
  - Haematemesis [Recovered/Resolved]
  - Mallory-Weiss syndrome [Unknown]
  - Pancreatitis acute [Unknown]
  - Myalgia [Recovered/Resolved]
  - Arthralgia [Unknown]
  - Tendonitis [Unknown]
  - Nausea [Recovered/Resolved]
  - Abdominal pain [Recovered/Resolved]
  - Diarrhoea [Recovered/Resolved]

NARRATIVE: CASE EVENT DATE: 20240524
